FAERS Safety Report 12208328 (Version 1)
Quarter: 2016Q1

REPORT INFORMATION
  Report Type: Spontaneous
  Country: FR (occurrence: FR)
  Receive Date: 20160324
  Receipt Date: 20160324
  Transmission Date: 20160526
  Serious: Yes (Other)
  Sender: FDA-Public Use
  Company Number: FR-TEVA-644959ISR

PATIENT
  Age: 27 Year
  Sex: Male

DRUGS (4)
  1. VINCRISTINE TEVA [Suspect]
     Active Substance: VINCRISTINE
     Indication: T-CELL TYPE ACUTE LEUKAEMIA
     Dosage: 2 MILLIGRAM DAILY; AT DAY 1, DAY 3, DAY 15, DAY 16. CONSOLIDATION CHEMOTHERAPY
     Route: 041
     Dates: start: 20151210
  2. CYCLOPHOSPHAMIDE. [Concomitant]
     Active Substance: CYCLOPHOSPHAMIDE
     Indication: T-CELL TYPE ACUTE LEUKAEMIA
     Dosage: CONSOLIDATION CHEMOTHERAPY
  3. KIDROLASE 10000 U.I. [Suspect]
     Active Substance: ASPARAGINASE
     Indication: T-CELL TYPE ACUTE LEUKAEMIA
     Route: 042
     Dates: start: 20151210
  4. CERUBIDINE [Suspect]
     Active Substance: DAUNORUBICIN HYDROCHLORIDE
     Indication: T-CELL TYPE ACUTE LEUKAEMIA
     Dosage: 52.5 MILLIGRAM DAILY; AT DAY 1, DAY 3, DAY 15, DAY 16. CONSOLIDATION CHEMOTHERAPY
     Route: 041
     Dates: start: 20151210

REACTIONS (5)
  - Back pain [Recovered/Resolved]
  - Neuralgia [Not Recovered/Not Resolved]
  - Areflexia [Not Recovered/Not Resolved]
  - Psychomotor skills impaired [Not Recovered/Not Resolved]
  - Polyneuropathy [Not Recovered/Not Resolved]

NARRATIVE: CASE EVENT DATE: 20151224
